FAERS Safety Report 5728162-4 (Version None)
Quarter: 2008Q2

REPORT INFORMATION
  Report Type: 
  Country: None (occurrence: None)
  Receive Date: 20080505
  Receipt Date: 20080424
  Transmission Date: 20081010
  Serious: Yes (Congenital Anomaly)
  Sender: FDA-Public Use
  Company Number: GB-ABBOTT-05P-167-0292431-00

PATIENT
  Sex: Male

DRUGS (1)
  1. VALPROIC ACID [Suspect]
     Indication: DRUG EXPOSURE DURING PREGNANCY

REACTIONS (34)
  - ABNORMAL BEHAVIOUR [None]
  - ANOMALY OF EXTERNAL EAR CONGENITAL [None]
  - ASOCIAL BEHAVIOUR [None]
  - ASPERGER'S DISORDER [None]
  - ASTIGMATISM [None]
  - ATTENTION DEFICIT/HYPERACTIVITY DISORDER [None]
  - CLUMSINESS [None]
  - COMMUNICATION DISORDER [None]
  - CONDUCT DISORDER [None]
  - COORDINATION ABNORMAL [None]
  - DEAFNESS [None]
  - DEAFNESS BILATERAL [None]
  - DEVELOPMENTAL DELAY [None]
  - DISTURBANCE IN ATTENTION [None]
  - DRUG EXPOSURE DURING PREGNANCY [None]
  - DYSMORPHISM [None]
  - DYSPRAXIA [None]
  - FEEDING DISORDER NEONATAL [None]
  - FOETAL ANTICONVULSANT SYNDROME [None]
  - FOOT DEFORMITY [None]
  - FRUSTRATION [None]
  - HYPERMETROPIA [None]
  - HYPOKINESIA [None]
  - HYPOTONIA [None]
  - ILLITERACY [None]
  - IMPULSIVE BEHAVIOUR [None]
  - LEARNING DISORDER [None]
  - LIGAMENT LAXITY [None]
  - MENTAL IMPAIRMENT [None]
  - MIDDLE EAR DISORDER [None]
  - OTITIS MEDIA [None]
  - PLAGIOCEPHALY [None]
  - SCREAMING [None]
  - SPEECH DISORDER DEVELOPMENTAL [None]
